FAERS Safety Report 10310228 (Version 4)
Quarter: 2014Q4

REPORT INFORMATION
  Report Type: Spontaneous
  Country: US (occurrence: US)
  Receive Date: 20140717
  Receipt Date: 20141215
  Transmission Date: 20150528
  Serious: Yes (Death, Hospitalization, Other)
  Sender: FDA-Public Use
  Company Number: US-MERCK-1407USA006798

PATIENT
  Sex: Male
  Weight: 104.31 kg

DRUGS (1)
  1. JANUVIA [Suspect]
     Active Substance: SITAGLIPTIN PHOSPHATE
     Indication: TYPE 2 DIABETES MELLITUS
     Dosage: 100 MG, QD
     Route: 048
     Dates: start: 200703, end: 200708

REACTIONS (25)
  - Renal cyst [Unknown]
  - Subclavian vein thrombosis [Unknown]
  - Hyperlipidaemia [Unknown]
  - Glaucoma [Unknown]
  - Thrombophlebitis superficial [Unknown]
  - Adenocarcinoma pancreas [Fatal]
  - Hepatic failure [Unknown]
  - Osteoarthritis [Unknown]
  - Cholelithiasis [Unknown]
  - Metastases to liver [Unknown]
  - Cholestasis [Unknown]
  - Arteriosclerosis [Unknown]
  - Deep vein thrombosis [Unknown]
  - Pulmonary embolism [Unknown]
  - Benign prostatic hyperplasia [Unknown]
  - Biliary dilatation [Unknown]
  - Renal failure [Unknown]
  - Biliary sphincterotomy [Unknown]
  - Diverticulum [Unknown]
  - Lymphadenopathy [Unknown]
  - Pulmonary mass [Unknown]
  - Hypertension [Unknown]
  - Gastrooesophageal reflux disease [Unknown]
  - Bile duct stent insertion [Unknown]
  - Dilatation ventricular [Unknown]

NARRATIVE: CASE EVENT DATE: 2008
